FAERS Safety Report 9173840 (Version 1)
Quarter: 2013Q1

REPORT INFORMATION
  Report Type: Report from Study
  Country: MY (occurrence: MY)
  Receive Date: 20130320
  Receipt Date: 20130320
  Transmission Date: 20140127
  Serious: Yes (Hospitalization)
  Sender: FDA-Public Use
  Company Number: MY-JNJFOC-20110801783

PATIENT
  Age: 50 Year
  Sex: Female
  Weight: 82.4 kg

DRUGS (7)
  1. GOLIMUMAB [Suspect]
     Indication: RHEUMATOID ARTHRITIS
     Route: 042
     Dates: start: 20100531
  2. GOLIMUMAB [Suspect]
     Indication: RHEUMATOID ARTHRITIS
     Route: 042
     Dates: start: 20110531
  3. FOLATE [Concomitant]
     Indication: MEDICAL DIET
     Route: 048
     Dates: start: 20080723
  4. VOLTAREN [Concomitant]
     Indication: ANALGESIC THERAPY
     Route: 048
     Dates: start: 20101115
  5. METHOTREXATE [Concomitant]
  6. ROCALTROL [Concomitant]
     Indication: VITAMIN SUPPLEMENTATION
     Dates: start: 20100726
  7. ROCALTROL [Concomitant]
     Indication: VITAMIN SUPPLEMENTATION
     Dates: start: 20090527, end: 20100725

REACTIONS (1)
  - Pneumonia [Recovered/Resolved]
